FAERS Safety Report 15168929 (Version 1)
Quarter: 2018Q3

REPORT INFORMATION
  Report Type: Other
  Country: GB (occurrence: GB)
  Receive Date: 20180720
  Receipt Date: 20180720
  Transmission Date: 20181010
  Serious: Yes (Other)
  Sender: FDA-Public Use
  Company Number: GB-LUPIN PHARMACEUTICALS INC.-2018-05087

PATIENT
  Age: 28 Year
  Sex: Female
  Weight: 101.6 kg

DRUGS (1)
  1. SERTRALINE [Suspect]
     Active Substance: SERTRALINE HYDROCHLORIDE
     Indication: DEPRESSION SUICIDAL
     Dosage: 100 MG, UNK
     Route: 048
     Dates: start: 20170901

REACTIONS (4)
  - Nausea [Not Recovered/Not Resolved]
  - Vomiting [Unknown]
  - Alcohol interaction [Unknown]
  - Bruxism [Not Recovered/Not Resolved]

NARRATIVE: CASE EVENT DATE: 20171001
